FAERS Safety Report 13910967 (Version 2)
Quarter: 2017Q4

REPORT INFORMATION
  Report Type: Spontaneous
  Country: FI (occurrence: FI)
  Receive Date: 20170828
  Receipt Date: 20171006
  Transmission Date: 20180320
  Serious: Yes (Hospitalization, Other)
  Sender: FDA-Public Use
  Company Number: FI-PFIZER INC-2017365890

PATIENT
  Age: 64 Year
  Sex: Female

DRUGS (3)
  1. KETIPINOR DEPOT [Concomitant]
     Indication: SLEEP DISORDER
     Dosage: 25 MG, 1-2X/DAY
  2. TENOX [Concomitant]
     Indication: SLEEP DISORDER
     Dosage: 20 MG, 1X/DAY
     Dates: end: 201607
  3. ZELDOX [Suspect]
     Active Substance: ZIPRASIDONE
     Indication: PSYCHOTIC DISORDER
     Dosage: 80 MG, 2X/DAY
     Route: 048
     Dates: start: 2001, end: 201607

REACTIONS (5)
  - Psychotic disorder [Recovered/Resolved]
  - Epilepsy [Recovered/Resolved]
  - Electrocardiogram QT prolonged [Recovered/Resolved]
  - Muscle twitching [Not Recovered/Not Resolved]
  - Disease recurrence [Recovered/Resolved]

NARRATIVE: CASE EVENT DATE: 2010
